FAERS Safety Report 8962480 (Version 2)
Quarter: 2013Q1

REPORT INFORMATION
  Report Type: Spontaneous
  Country: US (occurrence: US)
  Receive Date: 20121213
  Receipt Date: 20130213
  Transmission Date: 20140127
  Serious: Yes (Death)
  Sender: FDA-Public Use
  Company Number: US-GILEAD-2012-0066079

PATIENT
  Sex: Female

DRUGS (2)
  1. CAYSTON [Suspect]
     Indication: CYSTIC FIBROSIS
     Dosage: 75 MG, UNK
     Route: 055
  2. CAYSTON [Suspect]
     Indication: PSEUDOMONAS TEST POSITIVE

REACTIONS (2)
  - Respiratory failure [Fatal]
  - Sepsis [Fatal]
